FAERS Safety Report 4521302-4 (Version None)
Quarter: 2004Q4

REPORT INFORMATION
  Report Type: 
  Country: None (occurrence: None)
  Receive Date: 20041203
  Receipt Date: 20041124
  Transmission Date: 20050328
  Serious: Yes (Other)
  Sender: FDA-Public Use
  Company Number: 2004-05016

PATIENT
  Age: 28 Year
  Sex: Female

DRUGS (3)
  1. CLOMIPRAMINE HYDROCHLORIDE (WATSON LABORATORIES) (CLOMIPRAMINE HYDROCH [Suspect]
     Indication: DEPRESSIVE SYMPTOM
     Dosage: 25 MG, DAILY, ORAL
     Route: 048
  2. BUPROPION HYDROCHLORIDE SUSTAINED RELEASE (BUPROPION HYDROCHLORIDE) TA [Suspect]
     Indication: DEPRESSIVE SYMPTOM
     Dosage: SEE IMAGE
     Route: 048
  3. RISPERDAL [Concomitant]

REACTIONS (3)
  - DRUG INTERACTION [None]
  - ELECTROENCEPHALOGRAM ABNORMAL [None]
  - GRAND MAL CONVULSION [None]
